FAERS Safety Report 17115584 (Version 2)
Quarter: 2019Q4

REPORT INFORMATION
  Report Type: Report from Study
  Country: NL (occurrence: NL)
  Receive Date: 20191205
  Receipt Date: 20191223
  Transmission Date: 20200122
  Serious: Yes (Hospitalization)
  Sender: FDA-Public Use
  Company Number: NL-ROCHE-2483136

PATIENT
  Age: 67 Year
  Sex: Female

DRUGS (3)
  1. ATEZOLIZUMAB. [Suspect]
     Active Substance: ATEZOLIZUMAB
     Indication: BREAST CANCER METASTATIC
     Dosage: MOST RECENT DOSE ON 31/OCT/2019 PRIOR TO EVENT ONSET
     Route: 042
     Dates: start: 20191031
  2. CARBOPLATIN. [Suspect]
     Active Substance: CARBOPLATIN
     Indication: BREAST CANCER METASTATIC
     Dosage: MOST RECENT DOSE ON 31/OCT/2019 PRIOR TO EVENT ONSET
     Route: 042
     Dates: start: 20191031
  3. CYCLOPHOSPHAMIDE. [Suspect]
     Active Substance: CYCLOPHOSPHAMIDE
     Indication: BREAST CANCER METASTATIC
     Dosage: MOST RECENT DOSE ON 31/OCT/2019 PRIOR TO EVENT ONSET
     Route: 042
     Dates: start: 20191031

REACTIONS (1)
  - Cognitive disorder [Recovered/Resolved]

NARRATIVE: CASE EVENT DATE: 20191115
